FAERS Safety Report 6437006-7 (Version None)
Quarter: 2009Q4

REPORT INFORMATION
  Report Type: 
  Country: None (occurrence: None)
  Receive Date: 20091112
  Receipt Date: 20091104
  Transmission Date: 20100525
  Serious: Yes (Hospitalization, Other)
  Sender: FDA-Public Use
  Company Number: US-BIOGENIDEC-2009BI036197

PATIENT
  Age: 32 Year
  Sex: Female

DRUGS (1)
  1. AVONEX [Suspect]
     Indication: MULTIPLE SCLEROSIS
     Route: 030
     Dates: start: 20060306

REACTIONS (5)
  - CONVULSION [None]
  - DIALYSIS [None]
  - HEADACHE [None]
  - LOSS OF CONSCIOUSNESS [None]
  - MULTIPLE SCLEROSIS RELAPSE [None]
